FAERS Safety Report 10072671 (Version 2)
Quarter: 2014Q2

REPORT INFORMATION
  Report Type: Spontaneous
  Country: US (occurrence: US)
  Receive Date: 20140411
  Receipt Date: 20140616
  Transmission Date: 20141212
  Serious: Yes (Hospitalization)
  Sender: FDA-Public Use
  Company Number: US-B.I. PHARMACEUTICALS,INC./RIDGEFIELD-2014-BI-15849BP

PATIENT
  Age: 66 Year
  Sex: Female
  Weight: 74 kg

DRUGS (1)
  1. PRADAXA [Suspect]
     Indication: ATRIAL FIBRILLATION
     Dosage: 300 MG
     Route: 048
     Dates: end: 20130713

REACTIONS (3)
  - Intracardiac thrombus [Recovered/Resolved]
  - Fall [Recovered/Resolved]
  - Fall [Recovered/Resolved]
